FAERS Safety Report 8610069 (Version 8)
Quarter: 2013Q2

REPORT INFORMATION
  Report Type: Spontaneous
  Country: US (occurrence: US)
  Receive Date: 20120612
  Receipt Date: 20130404
  Transmission Date: 20140414
  Serious: Yes (Other)
  Sender: FDA-Public Use
  Company Number: US-PFIZER INC-2012136641

PATIENT
  Age: 41 Year
  Sex: Male
  Weight: 86.17 kg

DRUGS (17)
  1. SUTENT [Suspect]
     Indication: THYMOMA MALIGNANT
     Dosage: 50 MG, 1X/DAY
     Route: 048
     Dates: start: 20120531, end: 20121127
  2. SUTENT [Interacting]
     Indication: METASTASES TO LUNG
     Dosage: 50 MG, 42 DAY CYCLES, (28 DAYS ON FOLLOWED BY 14 DAYS OFF)
     Dates: start: 20121215, end: 20130308
  3. SUTENT [Interacting]
     Indication: METASTASES TO PLEURA
     Dosage: 50 MG, CYCLIC 28 D ON, FOLLOWED BY 14 D OFF
     Dates: start: 20130315
  4. SUTENT [Interacting]
     Indication: METASTASES TO BONE
  5. BACTRIM [Interacting]
  6. AMLODIPINE [Concomitant]
     Dosage: UNK
  7. ENTOCORT [Concomitant]
     Indication: COLITIS ULCERATIVE
     Dosage: UNK
  8. LISINOPRIL [Concomitant]
     Indication: BLOOD PRESSURE INCREASED
     Dosage: 5 MG, UNK
  9. METFORMIN [Concomitant]
     Indication: BLOOD GLUCOSE ABNORMAL
     Dosage: 850 MG, 2X/DAY
  10. ATIVAN [Concomitant]
     Indication: ANXIETY
     Dosage: 1 MG, AS NEEDED
  11. ATIVAN [Concomitant]
     Dosage: 1 MG, 1X/DAY
  12. VITAMIN D [Concomitant]
     Dosage: 2500 IU, DAILY
  13. OMEGA 3 [Concomitant]
     Dosage: UNK
  14. XGEVA [Concomitant]
     Dosage: MONTHLY
  15. XGEVA [Concomitant]
     Dosage: QUARTERLY
     Dates: start: 20130103
  16. AMBIEN [Concomitant]
     Indication: INSOMNIA
     Dosage: UNK
  17. BESIVANCE [Concomitant]
     Dosage: UNK

REACTIONS (14)
  - Diabetes mellitus [Not Recovered/Not Resolved]
  - Rectal haemorrhage [Unknown]
  - Drug interaction [Not Recovered/Not Resolved]
  - Fatigue [Unknown]
  - Stomatitis [Unknown]
  - Oropharyngeal pain [Unknown]
  - Dry throat [Unknown]
  - Cough [Unknown]
  - Dysphagia [Unknown]
  - Hordeolum [Not Recovered/Not Resolved]
  - Vision blurred [Unknown]
  - Anxiety [Unknown]
  - Malaise [Unknown]
  - Ejection fraction [Unknown]
